FAERS Safety Report 7580840-0 (Version None)
Quarter: 2011Q2

REPORT INFORMATION
  Report Type: 
  Country: None (occurrence: None)
  Receive Date: 20110629
  Receipt Date: 20110624
  Transmission Date: 20111010
  Serious: Yes (Other)
  Sender: FDA-Public Use
  Company Number: US-PFIZER INC-2011141277

PATIENT
  Sex: Female

DRUGS (2)
  1. XALATAN [Suspect]
     Indication: GLAUCOMA
     Dosage: ONE DROP IN EACH EYE ONCE A DAY
     Route: 047
     Dates: start: 20080101
  2. TIMOLOL [Concomitant]
     Indication: EYE DISORDER
     Dosage: UNK
     Route: 047

REACTIONS (2)
  - EYE PAIN [None]
  - ATRIAL FIBRILLATION [None]
